FAERS Safety Report 25528510 (Version 1)
Quarter: 2025Q3

REPORT INFORMATION
  Report Type: Spontaneous
  Country: US (occurrence: US)
  Receive Date: 20250708
  Receipt Date: 20250708
  Transmission Date: 20251021
  Serious: Yes (Other)
  Sender: MYLAN
  Company Number: US-MYLANLABS-2025M1055640

PATIENT
  Age: 18 Year
  Sex: Female

DRUGS (12)
  1. FAMOTIDINE [Suspect]
     Active Substance: FAMOTIDINE
     Indication: Oesophagitis
  2. FAMOTIDINE [Suspect]
     Active Substance: FAMOTIDINE
     Route: 065
  3. FAMOTIDINE [Suspect]
     Active Substance: FAMOTIDINE
     Route: 065
  4. FAMOTIDINE [Suspect]
     Active Substance: FAMOTIDINE
  5. OMEPRAZOLE [Suspect]
     Active Substance: OMEPRAZOLE
     Indication: Oesophagitis
  6. OMEPRAZOLE [Suspect]
     Active Substance: OMEPRAZOLE
     Route: 065
  7. OMEPRAZOLE [Suspect]
     Active Substance: OMEPRAZOLE
     Route: 065
  8. OMEPRAZOLE [Suspect]
     Active Substance: OMEPRAZOLE
  9. CARAFATE [Suspect]
     Active Substance: SUCRALFATE
     Indication: Oesophagitis
  10. CARAFATE [Suspect]
     Active Substance: SUCRALFATE
     Route: 065
  11. CARAFATE [Suspect]
     Active Substance: SUCRALFATE
     Route: 065
  12. CARAFATE [Suspect]
     Active Substance: SUCRALFATE

REACTIONS (1)
  - Drug ineffective [Unknown]
